FAERS Safety Report 6910106-0 (Version None)
Quarter: 2010Q3

REPORT INFORMATION
  Report Type: 
  Country: None (occurrence: None)
  Receive Date: 20100806
  Receipt Date: 20100802
  Transmission Date: 20110219
  Serious: Yes (Hospitalization)
  Sender: FDA-Public Use
  Company Number: FR-TEVA-242435ISR

PATIENT
  Sex: Male

DRUGS (6)
  1. AZILECT [Suspect]
     Indication: PARKINSON'S DISEASE
     Route: 048
     Dates: start: 20100706, end: 20100716
  2. MADOPAR [Concomitant]
  3. ENTACAPONE [Concomitant]
     Dates: end: 20100716
  4. ENTACAPONE [Concomitant]
     Dates: start: 20100721
  5. ROPINIROLE HYDROCHLORIDE [Concomitant]
     Dates: end: 20100716
  6. ROPINIROLE HYDROCHLORIDE [Concomitant]
     Dates: start: 20100721

REACTIONS (2)
  - PAPILLOEDEMA [None]
  - VISUAL ACUITY REDUCED [None]
